FAERS Safety Report 4592118-8 (Version None)
Quarter: 2005Q1

REPORT INFORMATION
  Report Type: 
  Country: None (occurrence: None)
  Receive Date: 20050125
  Receipt Date: 20041006
  Transmission Date: 20050727
  Serious: No
  Sender: FDA-Public Use
  Company Number: USA040875601

PATIENT
  Age: 79 Year
  Sex: Female
  Weight: 73 kg

DRUGS (4)
  1. FORTEO [Suspect]
     Indication: OSTEOPOROSIS
     Dates: start: 20040810
  2. SYNTHROID [Concomitant]
  3. ASPIRIN [Concomitant]
  4. VITAMINS NOS [Concomitant]

REACTIONS (3)
  - ARTHRALGIA [None]
  - GROIN PAIN [None]
  - NECK PAIN [None]
